FAERS Safety Report 16296178 (Version 2)
Quarter: 2019Q2

REPORT INFORMATION
  Report Type: Spontaneous
  Country: US (occurrence: US)
  Receive Date: 20190510
  Receipt Date: 20190612
  Transmission Date: 20190711
  Serious: No
  Sender: FDA-Public Use
  Company Number: US-PFIZER INC-2019195205

PATIENT
  Age: 79 Year
  Sex: Female

DRUGS (1)
  1. LYRICA [Suspect]
     Active Substance: PREGABALIN
     Indication: AUTONOMIC NEUROPATHY
     Dosage: 150 MG, 1X/DAY, [2 CAPSULES AT HS [AT NIGHT]]

REACTIONS (4)
  - Pain [Unknown]
  - Gait disturbance [Unknown]
  - Off label use [Unknown]
  - Product use issue [Unknown]
